FAERS Safety Report 8302618-2 (Version None)
Quarter: 2012Q2

REPORT INFORMATION
  Report Type: 
  Country: None (occurrence: None)
  Receive Date: 20120420
  Receipt Date: 20120413
  Transmission Date: 20120825
  Serious: Yes (Hospitalization, Other)
  Sender: FDA-Public Use
  Company Number: US-BAYER-2012-002191

PATIENT
  Age: 24 Year
  Sex: Female
  Weight: 77.098 kg

DRUGS (9)
  1. YASMIN [Suspect]
     Indication: CONTRACEPTION
     Dosage: UNK
     Route: 048
     Dates: start: 20080101, end: 20080301
  2. TYLENOL (CAPLET) [Concomitant]
     Dosage: UNK
     Dates: start: 20100118
  3. YAZ [Suspect]
     Indication: CONTRACEPTION
     Dosage: UNK
     Route: 048
     Dates: start: 20070901, end: 20071201
  4. VITAMIN B6 [Concomitant]
     Dosage: 1 AS NEEDED
     Route: 048
     Dates: start: 20100118, end: 20100128
  5. CALCIUM CARBONATE [Concomitant]
     Dosage: 2 TWICE DAILY AS NEEDED
     Route: 048
     Dates: start: 20100128
  6. YAZ [Suspect]
     Indication: MENSTRUAL CYCLE MANAGEMENT
  7. YASMIN [Suspect]
     Indication: MENSTRUAL CYCLE MANAGEMENT
     Dosage: UNK
     Route: 048
     Dates: start: 20050901, end: 20070901
  8. GAS-X [Concomitant]
     Dosage: 1 DAILY AS NEEDED
     Route: 048
     Dates: start: 20100128
  9. DEPO-PROVERA [Concomitant]
     Route: 030

REACTIONS (13)
  - NAUSEA [None]
  - DIARRHOEA [None]
  - FEAR OF DEATH [None]
  - CHOLECYSTITIS CHRONIC [None]
  - EMOTIONAL DISTRESS [None]
  - DYSPEPSIA [None]
  - NERVOUSNESS [None]
  - VOMITING [None]
  - INJURY [None]
  - BACK PAIN [None]
  - ABDOMINAL PAIN UPPER [None]
  - DEPRESSION [None]
  - BILIARY COLIC [None]
